FAERS Safety Report 17602033 (Version 1)
Quarter: 2020Q1

REPORT INFORMATION
  Report Type: Report from Study
  Country: JP (occurrence: JP)
  Receive Date: 20200330
  Receipt Date: 20200330
  Transmission Date: 20200409
  Serious: Yes (Other)
  Sender: FDA-Public Use
  Company Number: NVSJ2018JP000442

PATIENT
  Age: 10 Year
  Sex: Female

DRUGS (30)
  1. ILARIS [Suspect]
     Active Substance: CANAKINUMAB
     Indication: HYPER IGD SYNDROME
     Dosage: 72 MG, UNK
     Route: 058
     Dates: start: 20171204
  2. ILARIS [Suspect]
     Active Substance: CANAKINUMAB
     Dosage: 150 MG, UNK
     Route: 058
     Dates: start: 20180426
  3. ILARIS [Suspect]
     Active Substance: CANAKINUMAB
     Dosage: 150 MG, UNK
     Route: 058
     Dates: start: 20180719
  4. PREDNISOLONE. [Concomitant]
     Active Substance: PREDNISOLONE
     Indication: PYREXIA
     Dosage: 1 MG/KG, UNK
     Route: 048
  5. ILARIS [Suspect]
     Active Substance: CANAKINUMAB
     Dosage: 72 MG, UNK
     Route: 058
     Dates: start: 20180104
  6. ILARIS [Suspect]
     Active Substance: CANAKINUMAB
     Dosage: 150 MG
     Route: 048
     Dates: start: 20190718
  7. ILARIS [Suspect]
     Active Substance: CANAKINUMAB
     Dosage: 150 MG
     Route: 058
     Dates: start: 20190104
  8. ILARIS [Suspect]
     Active Substance: CANAKINUMAB
     Dosage: 150 MG
     Route: 048
     Dates: start: 20190228
  9. ILARIS [Suspect]
     Active Substance: CANAKINUMAB
     Dosage: 150 MG
     Route: 048
     Dates: start: 20190912
  10. ILARIS [Suspect]
     Active Substance: CANAKINUMAB
     Dosage: 150 MG, UNK
     Route: 058
     Dates: start: 20180302
  11. ILARIS [Suspect]
     Active Substance: CANAKINUMAB
     Dosage: 150 MG, UNK
     Route: 058
     Dates: start: 20180621
  12. ILARIS [Suspect]
     Active Substance: CANAKINUMAB
     Dosage: 150 MG, UNK
     Route: 058
     Dates: start: 20180816
  13. ILARIS [Suspect]
     Active Substance: CANAKINUMAB
     Dosage: 150 MG
     Route: 058
     Dates: start: 20181206
  14. ILARIS [Suspect]
     Active Substance: CANAKINUMAB
     Dosage: 150 MG
     Route: 048
     Dates: start: 20190328
  15. ILARIS [Suspect]
     Active Substance: CANAKINUMAB
     Dosage: 150 MG
     Route: 048
     Dates: start: 20190815
  16. ILARIS [Suspect]
     Active Substance: CANAKINUMAB
     Dosage: 150 MG
     Route: 048
     Dates: start: 20191010
  17. ILARIS [Suspect]
     Active Substance: CANAKINUMAB
     Dosage: 150 MG, UNK
     Route: 058
     Dates: start: 20180201
  18. ILARIS [Suspect]
     Active Substance: CANAKINUMAB
     Dosage: 150 MG, UNK
     Route: 058
     Dates: start: 20181011
  19. ILARIS [Suspect]
     Active Substance: CANAKINUMAB
     Dosage: 150 MG
     Route: 048
     Dates: start: 20190429
  20. ILARIS [Suspect]
     Active Substance: CANAKINUMAB
     Dosage: 150 MG
     Route: 048
     Dates: start: 20190523
  21. ILARIS [Suspect]
     Active Substance: CANAKINUMAB
     Dosage: 150 MG
     Route: 048
     Dates: start: 20191105
  22. ILARIS [Suspect]
     Active Substance: CANAKINUMAB
     Dosage: 150 MG
     Route: 048
     Dates: start: 20190620
  23. ILARIS [Suspect]
     Active Substance: CANAKINUMAB
     Dosage: 72 MG, UNK
     Route: 058
     Dates: start: 20180118
  24. ILARIS [Suspect]
     Active Substance: CANAKINUMAB
     Dosage: 150 MG, UNK
     Route: 058
     Dates: start: 20180329
  25. ILARIS [Suspect]
     Active Substance: CANAKINUMAB
     Dosage: 150 MG, UNK
     Route: 058
     Dates: start: 20180524
  26. ILARIS [Suspect]
     Active Substance: CANAKINUMAB
     Dosage: 150 MG, UNK
     Route: 058
     Dates: start: 20180913
  27. ILARIS [Suspect]
     Active Substance: CANAKINUMAB
     Dosage: 150 MG, UNK
     Route: 058
     Dates: start: 20181108
  28. ILARIS [Suspect]
     Active Substance: CANAKINUMAB
     Dosage: 150 MG
     Route: 058
     Dates: start: 20190131
  29. LIPOVAS [Concomitant]
     Active Substance: PRAVASTATIN SODIUM
     Indication: HYPER IGD SYNDROME
     Dosage: UNK
     Route: 048
  30. SIMVASTATIN. [Concomitant]
     Active Substance: SIMVASTATIN
     Indication: HYPER IGD SYNDROME
     Dosage: UNK
     Route: 048

REACTIONS (49)
  - Vomiting [Unknown]
  - Nasal congestion [Recovered/Resolved]
  - Paronychia [Recovered/Resolved]
  - Pyrexia [Recovered/Resolved]
  - Pain in extremity [Recovered/Resolved]
  - Abdominal pain [Recovered/Resolved]
  - Eczema [Unknown]
  - Paronychia [Recovered/Resolved]
  - Parotid gland enlargement [Recovered/Resolved]
  - Pyrexia [Recovered/Resolved]
  - Nasal congestion [Recovering/Resolving]
  - Rhinorrhoea [Recovering/Resolving]
  - Therapeutic response decreased [Unknown]
  - Abdominal pain [Recovered/Resolved]
  - Nasopharyngitis [Recovered/Resolved]
  - Malaise [Recovered/Resolved]
  - Oropharyngeal pain [Recovering/Resolving]
  - Cough [Recovering/Resolving]
  - Neck pain [Recovered/Resolved]
  - C-reactive protein increased [Unknown]
  - Pyrexia [Recovered/Resolved]
  - Diarrhoea [Unknown]
  - Rhinorrhoea [Recovering/Resolving]
  - Influenza [Recovered/Resolved]
  - Pyrexia [Recovered/Resolved]
  - Oropharyngeal pain [Recovering/Resolving]
  - Oropharyngeal pain [Recovered/Resolved]
  - Rhinorrhoea [Recovered/Resolved]
  - Amylase increased [Recovering/Resolving]
  - Upper respiratory tract inflammation [Recovered/Resolved]
  - Headache [Recovered/Resolved]
  - Pyrexia [Recovering/Resolving]
  - Decreased immune responsiveness [Unknown]
  - Pyrexia [Recovered/Resolved]
  - Cough [Recovered/Resolved]
  - Rhinorrhoea [Recovered/Resolved]
  - Pyrexia [Recovered/Resolved]
  - Cough [Recovered/Resolved]
  - Pyrexia [Recovered/Resolved]
  - Infection [Unknown]
  - Upper respiratory tract inflammation [Recovered/Resolved]
  - Pyrexia [Recovering/Resolving]
  - Folliculitis [Recovering/Resolving]
  - Cough [Recovered/Resolved]
  - Rhinorrhoea [Recovered/Resolved]
  - Myalgia [Unknown]
  - Serum amyloid A protein increased [Unknown]
  - Gastroenteritis [Recovering/Resolving]
  - Rhinorrhoea [Recovered/Resolved]

NARRATIVE: CASE EVENT DATE: 20171220
